FAERS Safety Report 14711213 (Version 1)
Quarter: 2018Q2

REPORT INFORMATION
  Report Type: Spontaneous
  Country: FR (occurrence: FR)
  Receive Date: 20180403
  Receipt Date: 20180403
  Transmission Date: 20180711
  Serious: Yes (Hospitalization, Other)
  Sender: FDA-Public Use
  Company Number: PHHY2018FR058223

PATIENT
  Age: 77 Year
  Sex: Female

DRUGS (11)
  1. XELEVIA [Concomitant]
     Active Substance: SITAGLIPTIN PHOSPHATE
     Indication: PRODUCT USED FOR UNKNOWN INDICATION
     Dosage: UNK
     Route: 065
  2. STAGID [Concomitant]
     Active Substance: METFORMIN PAMOATE
     Indication: PRODUCT USED FOR UNKNOWN INDICATION
     Dosage: UNK
     Route: 065
  3. MYCOSTER [Suspect]
     Active Substance: CICLOPIROX\CICLOPIROX OLAMINE
     Indication: NAIL BED INFECTION
     Dosage: UNK (INCONNUE)
     Route: 003
  4. TERBINAFINE. [Suspect]
     Active Substance: TERBINAFINE
     Indication: NAIL BED INFECTION
     Dosage: 250 MG, QD
     Route: 048
     Dates: start: 20180125, end: 20180228
  5. ASPIRINE PROTECT [Suspect]
     Active Substance: ASPIRIN
     Indication: MYELODYSPLASTIC SYNDROME
     Dosage: 100 MG, QD
     Route: 048
     Dates: start: 20180125, end: 20180220
  6. PAROXETINE. [Concomitant]
     Active Substance: PAROXETINE
     Indication: PRODUCT USED FOR UNKNOWN INDICATION
     Dosage: UNK
     Route: 065
  7. RAMIPRIL. [Concomitant]
     Active Substance: RAMIPRIL
     Indication: PRODUCT USED FOR UNKNOWN INDICATION
     Dosage: UNK
     Route: 065
  8. INDAPAMIDE. [Concomitant]
     Active Substance: INDAPAMIDE
     Indication: PRODUCT USED FOR UNKNOWN INDICATION
     Dosage: UNK
     Route: 065
  9. AMLODIPINE [Concomitant]
     Active Substance: AMLODIPINE BESYLATE
     Indication: PRODUCT USED FOR UNKNOWN INDICATION
     Dosage: UNK
     Route: 065
  10. ALPRAZOLAM. [Concomitant]
     Active Substance: ALPRAZOLAM
     Indication: PRODUCT USED FOR UNKNOWN INDICATION
     Dosage: UNK
     Route: 065
  11. REVLIMID [Suspect]
     Active Substance: LENALIDOMIDE
     Indication: MYELODYSPLASTIC SYNDROME
     Dosage: UNK
     Route: 048

REACTIONS (4)
  - Acute kidney injury [Recovering/Resolving]
  - Diarrhoea [Recovering/Resolving]
  - Thrombocytopenia [Not Recovered/Not Resolved]
  - Rash maculo-papular [Recovering/Resolving]

NARRATIVE: CASE EVENT DATE: 201801
